FAERS Safety Report 4464908-3 (Version None)
Quarter: 2004Q4

REPORT INFORMATION
  Report Type: 
  Country: None (occurrence: None)
  Receive Date: 20041004
  Receipt Date: 20040206
  Transmission Date: 20050328
  Serious: No
  Sender: FDA-Public Use
  Company Number: 361793

PATIENT
  Age: 72 Year
  Sex: Male

DRUGS (2)
  1. COREG [Suspect]
     Indication: ILL-DEFINED DISORDER
     Dosage: 3.125MG TWICE PER DAY
     Route: 048
  2. WARFARIN SODIUM [Concomitant]

REACTIONS (2)
  - BALANCE DISORDER [None]
  - MUSCULAR WEAKNESS [None]
